FAERS Safety Report 6540328-2 (Version None)
Quarter: 2010Q1

REPORT INFORMATION
  Report Type: 
  Country: None (occurrence: None)
  Receive Date: 20100115
  Receipt Date: 20100108
  Transmission Date: 20100710
  Serious: Yes (Other)
  Sender: FDA-Public Use
  Company Number: PHHY2009JP58802

PATIENT
  Age: 11 Year
  Sex: Male

DRUGS (2)
  1. CYCLOSPORINE [Suspect]
     Indication: HISTIOCYTOSIS HAEMATOPHAGIC
     Dosage: UNK
  2. DEXAMETHASONE [Suspect]
     Indication: HISTIOCYTOSIS HAEMATOPHAGIC

REACTIONS (11)
  - BLOOD BETA-D-GLUCAN ABNORMAL [None]
  - BONE MARROW FAILURE [None]
  - CLOSTRIDIAL INFECTION [None]
  - INFLAMMATION [None]
  - MELAENA [None]
  - PANCYTOPENIA [None]
  - PERITONITIS [None]
  - SHOCK HAEMORRHAGIC [None]
  - SMALL INTESTINE ULCER [None]
  - SURGERY [None]
  - THROMBOTIC MICROANGIOPATHY [None]
